FAERS Safety Report 8350238-6 (Version None)
Quarter: 2012Q2

REPORT INFORMATION
  Report Type: 
  Country: None (occurrence: None)
  Receive Date: 20120510
  Receipt Date: 20120507
  Transmission Date: 20120825
  Serious: Yes (Life-Threatening, Other)
  Sender: FDA-Public Use
  Company Number: PHHY2012TR039100

PATIENT
  Sex: Female
  Weight: 55 kg

DRUGS (1)
  1. PARACETAMOL+CAFFEINE [Suspect]
     Indication: ANALGESIC THERAPY
     Route: 048
     Dates: start: 20120411, end: 20120411

REACTIONS (1)
  - SUICIDE ATTEMPT [None]
